FAERS Safety Report 5336822-2 (Version None)
Quarter: 2007Q2

REPORT INFORMATION
  Report Type: 
  Country: None (occurrence: None)
  Receive Date: 20070524
  Receipt Date: 20070524
  Transmission Date: 20071010
  Serious: Yes (Other)
  Sender: FDA-Public Use
  Company Number: None

PATIENT
  Age: 41 Year
  Sex: Male
  Weight: 92.5 kg

DRUGS (3)
  1. CARBAMAZEPINE [Suspect]
     Indication: HEADACHE
     Dosage: 200 QAM + 1000MG QPM (INCREASED 1/26 FOR INSOMNIA COMPLAINT)
  2. CARBAMAZEPINE [Suspect]
     Indication: INSOMNIA
     Dosage: 200 QAM + 1000MG QPM (INCREASED 1/26 FOR INSOMNIA COMPLAINT)
  3. CARBAMAZEPINE [Suspect]
     Indication: PAIN
     Dosage: 200 QAM + 1000MG QPM (INCREASED 1/26 FOR INSOMNIA COMPLAINT)

REACTIONS (2)
  - DEPRESSED LEVEL OF CONSCIOUSNESS [None]
  - SOMNOLENCE [None]
